FAERS Safety Report 6693217-7 (Version None)
Quarter: 2010Q2

REPORT INFORMATION
  Report Type: 
  Country: None (occurrence: None)
  Receive Date: 20100421
  Receipt Date: 20100421
  Transmission Date: 20101027
  Serious: Yes (Other)
  Sender: FDA-Public Use
  Company Number: None

PATIENT
  Sex: Female
  Weight: 52.1637 kg

DRUGS (1)
  1. ZYRTEC [Suspect]
     Indication: SEASONAL ALLERGY
     Dosage: 1 DAILY PO
     Route: 048
     Dates: start: 20030101, end: 20100401

REACTIONS (3)
  - DRUG WITHDRAWAL SYNDROME [None]
  - PRURITUS [None]
  - URTICARIA [None]
